FAERS Safety Report 4423698-0 (Version None)
Quarter: 2004Q3

REPORT INFORMATION
  Report Type: 
  Country: None (occurrence: None)
  Receive Date: 20040811
  Receipt Date: 20040730
  Transmission Date: 20050211
  Serious: Yes (Hospitalization)
  Sender: FDA-Public Use
  Company Number: FI-MERCK-0408FIN00001

PATIENT
  Age: 41 Year
  Sex: Female

DRUGS (16)
  1. FOSAMAX [Concomitant]
     Route: 048
  2. ALFACALCIDOL [Concomitant]
     Route: 048
  3. ASPIRIN [Concomitant]
     Route: 048
  4. BISOPROLOL FUMARATE [Concomitant]
     Route: 048
  5. CYCLOSPORINE [Suspect]
     Indication: PROPHYLAXIS AGAINST TRANSPLANT REJECTION
     Route: 048
     Dates: start: 19840101
  6. CYCLOSPORINE [Suspect]
     Route: 048
     Dates: start: 19840101
  7. DARBEPOETIN ALFA [Concomitant]
     Route: 065
  8. ZETIA [Suspect]
     Indication: HYPERCHOLESTEROLAEMIA
     Route: 048
     Dates: start: 20040428, end: 20040623
  9. ZETIA [Suspect]
     Route: 048
     Dates: start: 20040624, end: 20040713
  10. FUROSEMIDE [Concomitant]
     Route: 048
  11. COZAAR [Concomitant]
     Route: 048
  12. METHYLPREDNISOLONE [Concomitant]
     Route: 048
  13. MYCOPHENOLATE MOFETIL [Concomitant]
     Route: 048
  14. MYCOPHENOLATE MOFETIL [Concomitant]
     Route: 048
  15. ROXITHROMYCIN [Suspect]
     Indication: RESPIRATORY TRACT INFECTION
     Route: 048
     Dates: start: 20040628, end: 20040701
  16. ZOCOR [Suspect]
     Indication: HYPERCHOLESTEROLAEMIA
     Route: 048
     Dates: start: 20030314, end: 20040713

REACTIONS (4)
  - DRUG INTERACTION [None]
  - EAR PAIN [None]
  - RHABDOMYOLYSIS [None]
  - VOMITING [None]
